FAERS Safety Report 5148154-6 (Version None)
Quarter: 2006Q4

REPORT INFORMATION
  Report Type: 
  Country: None (occurrence: None)
  Receive Date: 20061106
  Receipt Date: 20061026
  Transmission Date: 20070319
  Serious: Yes (Hospitalization)
  Sender: FDA-Public Use
  Company Number: 800295

PATIENT
  Age: 69 Year
  Sex: Male
  Weight: 68.2 kg

DRUGS (12)
  1. EXTRANEAL [Suspect]
     Indication: RENAL FAILURE CHRONIC
     Dosage: 2000 ML; EVERY DAY; IP
     Route: 033
     Dates: start: 20031006
  2. DIANEAL PD-4 1.5 [Concomitant]
  3. DIANEAL PD-4 2.5 [Concomitant]
  4. MAGNESIUM OXIDE [Concomitant]
  5. SELOKEN [Concomitant]
  6. LASIX [Concomitant]
  7. ALFAROL [Concomitant]
  8. KALIMATE [Concomitant]
  9. BLOPRESS [Concomitant]
  10. NORVASC [Concomitant]
  11. PENFILL R [Concomitant]
  12. EPOGEN [Concomitant]

REACTIONS (1)
  - RENAL CELL CARCINOMA STAGE UNSPECIFIED [None]
